FAERS Safety Report 9752027 (Version 1)
Quarter: 2013Q4

REPORT INFORMATION
  Report Type: Spontaneous
  Country: IT (occurrence: None)
  Receive Date: 20131211
  Receipt Date: 20131211
  Transmission Date: 20140711
  Serious: Yes (Hospitalization)
  Sender: FDA-Public Use
  Company Number: AUR-APL-2013-10353

PATIENT
  Sex: Female

DRUGS (2)
  1. BISOPROLOL (BISOPROLOL) [Suspect]
     Indication: PRODUCT USED FOR UNKNOWN INDICATION
  2. NITROGLICERINA (GLYCERYL TRINITRATE) [Suspect]
     Indication: PRODUCT USED FOR UNKNOWN INDICATION

REACTIONS (2)
  - Hypotension [None]
  - Loss of consciousness [None]
